FAERS Safety Report 9361684 (Version 1)
Quarter: 2013Q2

REPORT INFORMATION
  Report Type: Report from Study
  Country: AR (occurrence: AR)
  Receive Date: 20130621
  Receipt Date: 20130621
  Transmission Date: 20140414
  Serious: Yes (Death)
  Sender: FDA-Public Use
  Company Number: AR-ASTELLAS-2013US006405

PATIENT
  Age: 79 Year
  Sex: Male

DRUGS (4)
  1. ERLOTINIB TABLET [Suspect]
     Indication: PANCREATIC CARCINOMA METASTATIC
     Dosage: UNK
     Route: 065
  2. ERLOTINIB TABLET [Suspect]
     Indication: METASTASES TO LIVER
  3. GEMCITABINE [Concomitant]
     Indication: PANCREATIC CARCINOMA
     Dosage: UNK
     Route: 065
  4. GEMCITABINE [Concomitant]
     Indication: METASTASES TO LIVER

REACTIONS (1)
  - Death [Fatal]
